FAERS Safety Report 14895026 (Version 1)
Quarter: 2018Q2

REPORT INFORMATION
  Report Type: Spontaneous
  Country: US (occurrence: US)
  Receive Date: 20180427
  Receipt Date: 20180427
  Transmission Date: 20180711
  Serious: Yes (Disabling, Other)
  Sender: FDA-Public Use
  Company Number: None

PATIENT
  Age: 48 Year
  Sex: Female
  Weight: 95.4 kg

DRUGS (5)
  1. TRINTELLIX [Concomitant]
     Active Substance: VORTIOXETINE HYDROBROMIDE
  2. LEFLUNOMIDE. [Concomitant]
     Active Substance: LEFLUNOMIDE
  3. ENBREL [Suspect]
     Active Substance: ETANERCEPT
     Indication: RHEUMATOID ARTHRITIS
     Dosage: ?          QUANTITY:1 INJECTION(S);OTHER FREQUENCY:ONCE A WEEK;?
     Route: 030
     Dates: start: 20180406, end: 20180420
  4. ZOLOFT [Concomitant]
     Active Substance: SERTRALINE HYDROCHLORIDE
  5. XANAX [Concomitant]
     Active Substance: ALPRAZOLAM

REACTIONS (7)
  - Fluid retention [None]
  - Decreased appetite [None]
  - Chest pain [None]
  - Hyperhidrosis [None]
  - Peripheral swelling [None]
  - Fatigue [None]
  - Micturition urgency [None]

NARRATIVE: CASE EVENT DATE: 20180416
